FAERS Safety Report 18217107 (Version 2)
Quarter: 2020Q3

REPORT INFORMATION
  Report Type: Spontaneous
  Country: CN (occurrence: CN)
  Receive Date: 20200901
  Receipt Date: 20200908
  Transmission Date: 20201103
  Serious: Yes (Other)
  Sender: FDA-Public Use
  Company Number: CN-GLAXOSMITHKLINE-CN2020APC095559

PATIENT
  Sex: Female

DRUGS (5)
  1. LAMIVUDINE. [Suspect]
     Active Substance: LAMIVUDINE
     Indication: HIV INFECTION
     Dosage: 1 DF, QD (TABLET)
     Route: 048
  2. TENOFOVIR DISOPROXIL FUMARATE. [Suspect]
     Active Substance: TENOFOVIR DISOPROXIL FUMARATE
     Indication: HIV INFECTION
     Dosage: 1 DF, QD, (TABLET)
     Route: 048
  3. TIVICAY [Suspect]
     Active Substance: DOLUTEGRAVIR SODIUM
     Indication: HIV INFECTION
     Dosage: 1 DF, QD(TABLET)
     Route: 048
     Dates: start: 202005
  4. ZIAGEN [Suspect]
     Active Substance: ABACAVIR SULFATE
     Indication: HIV INFECTION
     Dosage: 1 DF, BID
     Route: 048
     Dates: start: 20200717
  5. CALCIUM [Concomitant]
     Active Substance: CALCIUM
     Indication: PRODUCT USED FOR UNKNOWN INDICATION
     Dosage: UNK

REACTIONS (11)
  - Blister [Unknown]
  - Back pain [Unknown]
  - Weight increased [Unknown]
  - Breast enlargement [Unknown]
  - Osteoporosis [Unknown]
  - Insomnia [Unknown]
  - Temperature intolerance [Unknown]
  - Liver injury [Unknown]
  - Anxiety [Unknown]
  - Diarrhoea [Recovered/Resolved]
  - Hepatic pain [Unknown]

NARRATIVE: CASE EVENT DATE: 20200719
